FAERS Safety Report 21282985 (Version 1)
Quarter: 2022Q3

REPORT INFORMATION
  Report Type: Spontaneous
  Country: RO (occurrence: RO)
  Receive Date: 20220901
  Receipt Date: 20220901
  Transmission Date: 20221027
  Serious: Yes (Death)
  Sender: FDA-Public Use
  Company Number: RO-JUBILANT CADISTA PHARMACEUTICALS-2022JUB00238

PATIENT
  Age: 52 Year
  Sex: Female

DRUGS (2)
  1. CARBAMAZEPINE [Suspect]
     Active Substance: CARBAMAZEPINE
     Indication: Dementia
     Route: 065
  2. ACETIC ACID [Suspect]
     Active Substance: ACETIC ACID
     Dosage: INGESTED ABOUT A LITER
     Route: 048

REACTIONS (3)
  - Multiple organ dysfunction syndrome [Fatal]
  - Hepatotoxicity [Fatal]
  - Toxicity to various agents [Fatal]
